FAERS Safety Report 23929576 (Version 1)
Quarter: 2024Q2

REPORT INFORMATION
  Report Type: Spontaneous
  Country: US (occurrence: US)
  Receive Date: 20240601
  Receipt Date: 20240601
  Transmission Date: 20240716
  Serious: No
  Sender: FDA-Public Use
  Company Number: US-RADIUS HEALTH INC.-2024US000817

PATIENT
  Age: 56 Year
  Sex: Female

DRUGS (2)
  1. TYMLOS [Suspect]
     Active Substance: ABALOPARATIDE
     Indication: Osteoporosis
     Dosage: 80 MICROGRAM, QD
     Route: 058
     Dates: start: 20040207
  2. TYMLOS [Suspect]
     Active Substance: ABALOPARATIDE
     Dosage: 10 MICROGRAM, QD (ONE CLICK)
     Route: 058

REACTIONS (11)
  - Coccydynia [Unknown]
  - Illness [Unknown]
  - Hangover [Unknown]
  - Intentional dose omission [Unknown]
  - Heart rate increased [Recovered/Resolved]
  - Back pain [Unknown]
  - Headache [Not Recovered/Not Resolved]
  - Nausea [Not Recovered/Not Resolved]
  - Palpitations [Unknown]
  - Pain [Unknown]
  - Intentional product misuse [Unknown]

NARRATIVE: CASE EVENT DATE: 20240207
